FAERS Safety Report 20712161 (Version 1)
Quarter: 2022Q2

REPORT INFORMATION
  Report Type: Spontaneous
  Country: JP (occurrence: JP)
  Receive Date: 20220414
  Receipt Date: 20220414
  Transmission Date: 20220721
  Serious: Yes (Hospitalization, Other)
  Sender: FDA-Public Use
  Company Number: None

PATIENT
  Age: 67 Year
  Sex: Female

DRUGS (3)
  1. INDAPAMIDE [Suspect]
     Active Substance: INDAPAMIDE
     Indication: Oedema peripheral
     Dosage: UNK
     Route: 065
  2. TORSEMIDE [Suspect]
     Active Substance: TORSEMIDE
     Indication: Diuretic therapy
     Dosage: UNK
     Route: 065
  3. AZOSEMIDE [Suspect]
     Active Substance: AZOSEMIDE
     Indication: Diuretic therapy
     Dosage: 60 MILLIGRAM
     Route: 065

REACTIONS (7)
  - Hypovitaminosis [Recovered/Resolved]
  - Pericardial effusion [Recovered/Resolved]
  - Vitamin B1 decreased [Recovered/Resolved]
  - Pulmonary congestion [Recovered/Resolved]
  - Pulmonary hypertension [Recovered/Resolved]
  - Oedema [Recovered/Resolved]
  - Drug ineffective [Unknown]
